FAERS Safety Report 8339496-1 (Version None)
Quarter: 2012Q2

REPORT INFORMATION
  Report Type: 
  Country: None (occurrence: None)
  Receive Date: 20120502
  Receipt Date: 20120417
  Transmission Date: 20120825
  Serious: Yes (Other)
  Sender: FDA-Public Use
  Company Number: 1270979

PATIENT
  Age: 55 Year
  Sex: Female

DRUGS (8)
  1. CHEMOTHERAPEUTICS [Concomitant]
  2. VINCRISTINE SULFATE [Concomitant]
  3. CYTARABINE [Concomitant]
  4. METHOTREXATE [Suspect]
     Indication: ACUTE LYMPHOCYTIC LEUKAEMIA
     Dosage: 15 MG WEEKLY,
  5. THERAPEUTIC RADIOPHARMACEUTICALS [Concomitant]
  6. MERCAPTOPURINE [Concomitant]
  7. ETOPOSIDE [Concomitant]
  8. DAUNORUBICIN HYDROCHLORIDE [Concomitant]

REACTIONS (2)
  - PANCYTOPENIA [None]
  - MYELODYSPLASTIC SYNDROME [None]
